FAERS Safety Report 21475551 (Version 1)
Quarter: 2022Q4

REPORT INFORMATION
  Report Type: Report from Study
  Country: US (occurrence: US)
  Receive Date: 20221019
  Receipt Date: 20221019
  Transmission Date: 20230113
  Serious: Yes (Hospitalization, Other)
  Sender: FDA-Public Use
  Company Number: US-BoehringerIngelheim-2022-BI-188621

PATIENT
  Age: 74 Year
  Sex: Female

DRUGS (7)
  1. OFEV [Suspect]
     Active Substance: NINTEDANIB
     Indication: Idiopathic pulmonary fibrosis
     Route: 048
     Dates: start: 20220720, end: 20220825
  2. NORVASC [Concomitant]
     Active Substance: AMLODIPINE BESYLATE
     Indication: Product used for unknown indication
     Route: 048
  3. PLAVIX [Concomitant]
     Active Substance: CLOPIDOGREL BISULFATE
     Indication: Product used for unknown indication
     Route: 048
  4. Prednisone (deltasone) 10MG TABLET [Concomitant]
     Indication: Product used for unknown indication
     Dates: start: 20220902
  5. Prednisone (deltasone) 10MG TABLET [Concomitant]
     Dosage: FOR 3 DAYS
  6. Prednisone (deltasone) 10MG TABLET [Concomitant]
     Dosage: FOR 2 DAYS
  7. Prednisone (deltasone) 10MG TABLET [Concomitant]
     Dosage: FOR 2 DAYS

REACTIONS (15)
  - Idiopathic pulmonary fibrosis [Recovered/Resolved]
  - Acute kidney injury [Recovered/Resolved]
  - Acute respiratory failure [Recovered/Resolved]
  - Hepatic enzyme increased [Unknown]
  - Headache [Unknown]
  - Back pain [Unknown]
  - Constipation [Unknown]
  - Nausea [Unknown]
  - Decreased appetite [Unknown]
  - Somnolence [Unknown]
  - Essential hypertension [Unknown]
  - Hypertransaminasaemia [Unknown]
  - Hyponatraemia [Recovered/Resolved]
  - Hypoxia [Recovered/Resolved]
  - Drug intolerance [Unknown]

NARRATIVE: CASE EVENT DATE: 20220723
